FAERS Safety Report 18580833 (Version 1)
Quarter: 2020Q4

REPORT INFORMATION
  Report Type: Other
  Country: US (occurrence: US)
  Receive Date: 20201204
  Receipt Date: 20201204
  Transmission Date: 20210114
  Serious: Yes (Death)
  Sender: FDA-Public Use
  Company Number: US-ROCHE-2721956

PATIENT
  Age: 49 Year
  Sex: Female
  Weight: 90.8 kg

DRUGS (18)
  1. DULOXETINE. [Concomitant]
     Active Substance: DULOXETINE
  2. OXYBUTYNIN CHLORIDE. [Concomitant]
     Active Substance: OXYBUTYNIN CHLORIDE
  3. TRAZODONE [Concomitant]
     Active Substance: TRAZODONE HYDROCHLORIDE
  4. BACLOFEN. [Concomitant]
     Active Substance: BACLOFEN
  5. FERROUS SULFATE. [Concomitant]
     Active Substance: FERROUS SULFATE
     Dosage: 325 (65)
  6. SELENIUM SULFIDE. [Concomitant]
     Active Substance: SELENIUM SULFIDE
  7. TRAMADOL. [Concomitant]
     Active Substance: TRAMADOL
  8. FLUOXETINE [Concomitant]
     Active Substance: FLUOXETINE HYDROCHLORIDE
  9. POLYETHYLENE GLYCOL [Concomitant]
     Active Substance: POLYETHYLENE GLYCOLS
     Dosage: POWDER
     Route: 048
  10. ROPINIROLE. [Concomitant]
     Active Substance: ROPINIROLE
  11. ABILIFY [Concomitant]
     Active Substance: ARIPIPRAZOLE
  12. ACETAMINOPHEN AND CODEINE [Concomitant]
     Active Substance: ACETAMINOPHEN\CODEINE PHOSPHATE
     Dosage: 300-60
  13. OCREVUS [Suspect]
     Active Substance: OCRELIZUMAB
     Indication: RELAPSING-REMITTING MULTIPLE SCLEROSIS
     Dosage: ON 19/OCT/2018, 02/NOV/2018, 17/APR/2019, 15/OCT/2019 AND 21/APR/2020, RECEIVED OCRELIZUMAB OF AN UN
     Route: 065
  14. HYDROCHLOROTHIAZIDE. [Concomitant]
     Active Substance: HYDROCHLOROTHIAZIDE
  15. NEXIUM [Concomitant]
     Active Substance: ESOMEPRAZOLE MAGNESIUM
  16. BUTRANS [Concomitant]
     Active Substance: BUPRENORPHINE
     Dosage: PATCH WEEKLY
     Route: 062
  17. SUMATRIPTAN. [Concomitant]
     Active Substance: SUMATRIPTAN
  18. FUROSEMIDE. [Concomitant]
     Active Substance: FUROSEMIDE

REACTIONS (1)
  - Death [Fatal]

NARRATIVE: CASE EVENT DATE: 202010
